FAERS Safety Report 5537310-0 (Version None)
Quarter: 2007Q4

REPORT INFORMATION
  Report Type: 
  Country: None (occurrence: None)
  Receive Date: 20071207
  Receipt Date: 20071120
  Transmission Date: 20080405
  Serious: Yes (Other)
  Sender: FDA-Public Use
  Company Number: US-ASTRAZENECA-2007UW19824

PATIENT
  Age: 55 Year
  Sex: Female
  Weight: 81.8 kg

DRUGS (6)
  1. PRILOSEC OTC [Suspect]
     Indication: GASTROOESOPHAGEAL REFLUX DISEASE
     Route: 048
  2. PRILOSEC OTC [Suspect]
     Route: 048
     Dates: start: 20060612, end: 20070710
  3. XANAX [Concomitant]
     Indication: ANXIETY
     Route: 048
  4. PHENERGAN HCL [Concomitant]
     Indication: NAUSEA
     Dates: start: 20050922
  5. EFFEXOR [Concomitant]
  6. ATIVAN [Concomitant]
     Indication: ANXIETY
     Route: 048
     Dates: start: 20050922

REACTIONS (16)
  - ABDOMINAL PAIN [None]
  - ANAL CANCER [None]
  - COLON ADENOMA [None]
  - DEPRESSION [None]
  - DIVERTICULUM [None]
  - DRUG ADMINISTRATION ERROR [None]
  - GASTRIC POLYPS [None]
  - HAEMORRHOIDS [None]
  - HIATUS HERNIA [None]
  - NAUSEA [None]
  - PALPITATIONS [None]
  - RASH [None]
  - SWELLING FACE [None]
  - TINNITUS [None]
  - VOMITING [None]
  - WEIGHT INCREASED [None]
